FAERS Safety Report 10213590 (Version 1)
Quarter: 2014Q2

REPORT INFORMATION
  Report Type: Spontaneous
  Country: US (occurrence: None)
  Receive Date: 20140602
  Receipt Date: 20140602
  Transmission Date: 20141212
  Serious: Yes (Life-Threatening, Disabling)
  Sender: FDA-Public Use
  Company Number: None

PATIENT
  Age: 47 Year
  Sex: Female
  Weight: 63.96 kg

DRUGS (2)
  1. QUETIAPINE [Suspect]
     Indication: BIPOLAR DISORDER
     Dosage: 1 AT NIGHT, 1/2 DAYTIME ONCE DAILY TAKEN BY MOUTH
     Route: 048
     Dates: start: 20130201, end: 20140518
  2. QUETIAPINE [Suspect]
     Dosage: 1 AT NIGHT, 1/2 DAYTIME ONCE DAILY TAKEN BY MOUTH
     Route: 048
     Dates: start: 20130201, end: 20140518

REACTIONS (3)
  - Anxiety [None]
  - Agoraphobia [None]
  - Product substitution issue [None]
